FAERS Safety Report 6759952-7 (Version None)
Quarter: 2010Q2

REPORT INFORMATION
  Report Type: 
  Country: None (occurrence: None)
  Receive Date: 20100608
  Receipt Date: 20100601
  Transmission Date: 20101027
  Serious: Yes (Other)
  Sender: FDA-Public Use
  Company Number: US-BAYER-201016189BCC

PATIENT
  Age: 23 Year
  Sex: Male
  Weight: 66 kg

DRUGS (2)
  1. ALEVE (CAPLET) [Suspect]
     Indication: SUICIDE ATTEMPT
     Dosage: TOTAL DAILY DOSE: 22000 MG  UNIT DOSE: 220 MG
     Route: 048
     Dates: start: 20100601
  2. CAPTAIN MORGAN'S RUM [Concomitant]
     Dosage: 1/4 BOTTLE
     Route: 048
     Dates: start: 20100601

REACTIONS (3)
  - AGITATION [None]
  - ERYTHEMA [None]
  - HAEMATEMESIS [None]
